FAERS Safety Report 22398371 (Version 3)
Quarter: 2024Q2

REPORT INFORMATION
  Report Type: Spontaneous
  Country: CN (occurrence: CN)
  Receive Date: 20230602
  Receipt Date: 20240529
  Transmission Date: 20240715
  Serious: Yes (Hospitalization, Other)
  Sender: FDA-Public Use
  Company Number: CN-ORGANON-O2305CHN002762

PATIENT
  Age: 26 Year
  Sex: Female
  Weight: 60.2 kg

DRUGS (7)
  1. FOLLITROPIN BETA [Suspect]
     Active Substance: FOLLITROPIN BETA
     Indication: In vitro fertilisation
     Dosage: 150 IU, QD; (600IU/0.72ML)
     Route: 058
     Dates: start: 20230507, end: 20230515
  2. ORGALUTRAN [Suspect]
     Active Substance: GANIRELIX ACETATE
     Indication: In vitro fertilisation
     Dosage: 0.25 MILLIGRAM, QD (0.5ML:0.25MG)
     Route: 058
     Dates: start: 20230511, end: 20230515
  3. TRIPTORELIN ACETATE [Suspect]
     Active Substance: TRIPTORELIN ACETATE
     Indication: In vitro fertilisation
     Dosage: 0.2MG, QD
     Route: 058
     Dates: start: 20230515, end: 20230515
  4. CHORIONIC GONADOTROPHIN [Suspect]
     Active Substance: CHORIOGONADOTROPIN ALFA
     Indication: In vitro fertilisation
     Dosage: 2000IU, QD
     Route: 030
     Dates: start: 20230515, end: 20230515
  5. MENOTROPINS [Suspect]
     Active Substance: MENOTROPINS
     Indication: In vitro fertilisation
     Dosage: 75IU, QD
     Route: 030
     Dates: start: 20230507, end: 20230515
  6. SODIUM CHLORIDE [Concomitant]
     Active Substance: SODIUM CHLORIDE
     Indication: Vehicle solution use
     Dosage: 2 ML QD
     Route: 030
     Dates: start: 20230507, end: 20230515
  7. SODIUM CHLORIDE [Concomitant]
     Active Substance: SODIUM CHLORIDE
     Dosage: 2 ML QD
     Route: 030
     Dates: start: 20230515, end: 20230515

REACTIONS (5)
  - Abdominal pain [Recovering/Resolving]
  - Abdominal distension [Recovering/Resolving]
  - Abdominal discomfort [Recovering/Resolving]
  - Vaginal haemorrhage [Recovering/Resolving]
  - Ovarian hyperstimulation syndrome [Unknown]

NARRATIVE: CASE EVENT DATE: 20230517
